FAERS Safety Report 7170430-6 (Version None)
Quarter: 2010Q4

REPORT INFORMATION
  Report Type: 
  Country: None (occurrence: None)
  Receive Date: 20101217
  Receipt Date: 20101212
  Transmission Date: 20110411
  Serious: Yes (Other)
  Sender: FDA-Public Use
  Company Number: CA-ROCHE-747461

PATIENT
  Sex: Male

DRUGS (6)
  1. CELLCEPT [Suspect]
     Route: 065
     Dates: start: 20100101
  2. RITUXAN [Suspect]
     Route: 065
     Dates: start: 20100101, end: 20100101
  3. CYCLOPHOSPHAMIDE [Suspect]
     Route: 065
     Dates: start: 20100101
  4. AZATHIOPRINE [Suspect]
     Route: 065
     Dates: start: 20100101
  5. CORTISONE [Suspect]
     Route: 065
  6. CORTISONE [Suspect]
     Dosage: DOSE SLOWLY DECREASED
     Route: 065

REACTIONS (3)
  - ANAEMIA [None]
  - INFLAMMATION [None]
  - RHEUMATOID ARTHRITIS [None]
